FAERS Safety Report 7462261-4 (Version None)
Quarter: 2011Q2

REPORT INFORMATION
  Report Type: 
  Country: None (occurrence: None)
  Receive Date: 20110506
  Receipt Date: 20101117
  Transmission Date: 20111010
  Serious: Yes (Other)
  Sender: FDA-Public Use
  Company Number: US-GENZYME-MOZO-1000504

PATIENT
  Age: 68 Year
  Sex: Male

DRUGS (10)
  1. CLOLAR [Suspect]
     Indication: ACUTE MYELOID LEUKAEMIA
     Dosage: 30 MG/M2, QD
     Route: 042
     Dates: start: 20101006
  2. METOPROLOL [Concomitant]
     Indication: ATRIAL FIBRILLATION
     Route: 065
  3. BETA BLOCKING AGENTS [Concomitant]
     Indication: ATRIAL FIBRILLATION
     Route: 065
  4. ACETYLSALICYLIC ACID [Concomitant]
     Indication: ATRIAL FIBRILLATION
     Route: 065
  5. POSACONAZOLE [Concomitant]
     Indication: PRODUCT USED FOR UNKNOWN INDICATION
     Route: 065
  6. MOZOBIL [Suspect]
     Indication: ACUTE MYELOID LEUKAEMIA
     Dosage: 240 MCG/KG, QD
     Route: 058
     Dates: start: 20101006
  7. CLOLAR [Suspect]
     Dosage: 20 MG/M2, QD
     Route: 042
     Dates: start: 20101116
  8. ANTIFUNGALS [Concomitant]
     Indication: PRODUCT USED FOR UNKNOWN INDICATION
     Route: 065
  9. MOZOBIL [Suspect]
     Dosage: 240 MCG/KG, QD
     Route: 058
  10. CLOLAR [Suspect]
     Dosage: 15 MG/M2, QD
     Route: 042

REACTIONS (11)
  - DIARRHOEA [None]
  - NEUTROPENIA [None]
  - PLATELET COUNT DECREASED [None]
  - FEBRILE NEUTROPENIA [None]
  - DEHYDRATION [None]
  - HEART RATE ABNORMAL [None]
  - ATRIAL FIBRILLATION [None]
  - LIVER FUNCTION TEST ABNORMAL [None]
  - HYPOTENSION [None]
  - ORTHOSTATIC HYPOTENSION [None]
  - BLOOD PRESSURE FLUCTUATION [None]
